FAERS Safety Report 6997713-4 (Version None)
Quarter: 2010Q3

REPORT INFORMATION
  Report Type: 
  Country: None (occurrence: None)
  Receive Date: 20100918
  Receipt Date: 20091214
  Transmission Date: 20110219
  Serious: No
  Sender: FDA-Public Use
  Company Number: US-WYE-H12651109

PATIENT
  Age: 79 Year
  Sex: Male
  Weight: 72.64 kg

DRUGS (4)
  1. ADVIL PM [Suspect]
     Indication: INSOMNIA
     Dosage: 1 CAPSULE X 1
     Route: 048
     Dates: start: 20091211, end: 20091211
  2. GINKGO BILOBA [Concomitant]
  3. MULTI-VITAMINS [Concomitant]
  4. VITAMIN E [Concomitant]

REACTIONS (2)
  - FOREIGN BODY [None]
  - THROAT IRRITATION [None]
